FAERS Safety Report 5009243-X (Version None)
Quarter: 2006Q2

REPORT INFORMATION
  Report Type: 
  Country: None (occurrence: None)
  Receive Date: 20060519
  Receipt Date: 20060509
  Transmission Date: 20061013
  Serious: Yes (Death, Life-Threatening, Hospitalization)
  Sender: FDA-Public Use
  Company Number: FRWYE611809MAY06

PATIENT
  Age: 77 Year
  Sex: Male

DRUGS (2)
  1. RAPAMUNE [Suspect]
     Indication: ACUTE MYELOID LEUKAEMIA
     Dosage: 4 MG TOTAL DAILY ORAL
     Route: 048
     Dates: start: 20060217, end: 20060301
  2. CYTARABINE [Suspect]
     Indication: ACUTE MYELOID LEUKAEMIA
     Dosage: 35 MG 1X PER 1 DAY SC
     Route: 058
     Dates: start: 20060213, end: 20060222

REACTIONS (5)
  - BONE MARROW FAILURE [None]
  - CIRCULATORY COLLAPSE [None]
  - COMA [None]
  - GENERAL PHYSICAL HEALTH DETERIORATION [None]
  - PYREXIA [None]
